FAERS Safety Report 21972620 (Version 1)
Quarter: 2023Q1

REPORT INFORMATION
  Report Type: Spontaneous
  Country: US (occurrence: US)
  Receive Date: 20230209
  Receipt Date: 20230209
  Transmission Date: 20230418
  Serious: Yes (Hospitalization, Other)
  Sender: FDA-Public Use
  Company Number: US-PFIZER INC-PV202300021715

PATIENT
  Age: 52 Year
  Sex: Male

DRUGS (1)
  1. BIVALIRUDIN [Suspect]
     Active Substance: BIVALIRUDIN
     Indication: Anticoagulant therapy
     Dosage: 40 PERCENT MORE THAN EXPECTED

REACTIONS (4)
  - Coagulation time prolonged [Unknown]
  - Coagulopathy [Unknown]
  - Overdose [Unknown]
  - Drug resistance [Unknown]
